FAERS Safety Report 13005178 (Version 2)
Quarter: 2016Q4

REPORT INFORMATION
  Report Type: Spontaneous
  Country: MX (occurrence: MX)
  Receive Date: 20161207
  Receipt Date: 20161221
  Transmission Date: 20170207
  Serious: Yes (Hospitalization, Disabling, Other)
  Sender: FDA-Public Use
  Company Number: MX-ROCHE-1864501

PATIENT
  Age: 41 Year
  Sex: Male
  Weight: 69 kg

DRUGS (3)
  1. INSULIN LISPRO [Concomitant]
     Active Substance: INSULIN LISPRO
     Indication: TYPE 1 DIABETES MELLITUS
     Route: 058
     Dates: start: 2006
  2. AVASTIN [Suspect]
     Active Substance: BEVACIZUMAB
     Indication: DIABETIC RETINOPATHY
     Dosage: SUSPENDED TREATMENT
     Route: 031
     Dates: start: 20161203, end: 20161203
  3. COMPLEX B [Concomitant]
     Active Substance: CALCIUM PANTOTHENATE\CYANOCOBALAMIN\NIACINAMIDE\PYRIDOXINE HYDROCHLORIDE\RIBOFLAVIN\THIAMINE MONONITRATE
     Indication: NEUROPATHY PERIPHERAL

REACTIONS (7)
  - Endophthalmitis [Unknown]
  - Blindness [Not Recovered/Not Resolved]
  - Eye oedema [Not Recovered/Not Resolved]
  - Pain [Unknown]
  - Suspected counterfeit product [Unknown]
  - Off label use [Unknown]
  - Suspected transmission of an infectious agent via product [Unknown]

NARRATIVE: CASE EVENT DATE: 20161203
